FAERS Safety Report 19671044 (Version 1)
Quarter: 2021Q3

REPORT INFORMATION
  Report Type: Spontaneous
  Country: BR (occurrence: BR)
  Receive Date: 20210806
  Receipt Date: 20210806
  Transmission Date: 20211014
  Serious: Yes (Life-Threatening)
  Sender: FDA-Public Use
  Company Number: NVSC2021BR178007

PATIENT
  Age: 59 Year
  Sex: Male

DRUGS (3)
  1. MELERIL [Concomitant]
     Indication: PRODUCT USED FOR UNKNOWN INDICATION
     Route: 065
  2. TOFRANIL PAMOATO [Suspect]
     Active Substance: IMIPRAMINE PAMOATE
     Indication: PRODUCT USED FOR UNKNOWN INDICATION
     Route: 065
  3. OLCADIL [Suspect]
     Active Substance: CLOXAZOLAM
     Indication: DEPRESSION
     Route: 065

REACTIONS (3)
  - Depression [Unknown]
  - Discouragement [Unknown]
  - Suicide attempt [Unknown]

NARRATIVE: CASE EVENT DATE: 201911
